FAERS Safety Report 11274520 (Version 2)
Quarter: 2015Q3

REPORT INFORMATION
  Report Type: Spontaneous
  Country: CH (occurrence: AU)
  Receive Date: 20150715
  Receipt Date: 20150728
  Transmission Date: 20151125
  Serious: Yes (Disabling)
  Sender: FDA-Public Use
  Company Number: CH-LPDUSPRD-20150542

PATIENT
  Age: 42 Year
  Sex: Male
  Weight: 57 kg

DRUGS (4)
  1. BUDO-SAN [Concomitant]
     Dosage: 3 MG, 2 IN 1 D
     Route: 048
  2. HUMIRA [Concomitant]
     Active Substance: ADALIMUMAB
     Dosage: 40 MG, 1 IN 1 WK
     Route: 058
  3. FERINJECT [Suspect]
     Active Substance: FERRIC CARBOXYMALTOSE
     Dosage: 50 MG, 1 IN 8 WKS
     Route: 041
     Dates: start: 201209, end: 201406
  4. PENTASA [Concomitant]
     Active Substance: MESALAMINE
     Dosage: 4000 MG, 1 IN 1 D
     Route: 048

REACTIONS (6)
  - Foot fracture [Recovered/Resolved with Sequelae]
  - Bone marrow oedema [Recovering/Resolving]
  - Osteomalacia [Recovered/Resolved]
  - Hypophosphataemia [Recovered/Resolved]
  - Osteoporosis [Recovering/Resolving]
  - Wrong technique in product usage process [Unknown]

NARRATIVE: CASE EVENT DATE: 201301
